FAERS Safety Report 22296771 (Version 1)
Quarter: 2023Q2

REPORT INFORMATION
  Report Type: Report from Study
  Country: TW (occurrence: TW)
  Receive Date: 20230509
  Receipt Date: 20230509
  Transmission Date: 20230721
  Serious: Yes (Hospitalization)
  Sender: FDA-Public Use
  Company Number: TW-ABBVIE-4756790

PATIENT
  Age: 60 Year
  Sex: Female

DRUGS (2)
  1. HUMIRA [Suspect]
     Active Substance: ADALIMUMAB
     Indication: Psoriatic arthropathy
     Dosage: FORM STRENGTH 40 MILLIGRAMS
     Route: 058
     Dates: start: 20160414
  2. HUMIRA [Suspect]
     Active Substance: ADALIMUMAB
     Indication: Psoriatic arthropathy
     Dosage: FORM STRENGTH 40 MILLIGRAMS
     Route: 058
     Dates: end: 20230401

REACTIONS (1)
  - Uterine prolapse [Recovering/Resolving]

NARRATIVE: CASE EVENT DATE: 20230503
